FAERS Safety Report 9788979 (Version 1)
Quarter: 2013Q4

REPORT INFORMATION
  Report Type: Spontaneous
  Country: GB (occurrence: GB)
  Receive Date: 20131230
  Receipt Date: 20131230
  Transmission Date: 20140711
  Serious: Yes (Disabling, Other)
  Sender: FDA-Public Use
  Company Number: GB-ABBVIE-13P-167-1181735-00

PATIENT
  Age: 39 Year
  Sex: Female

DRUGS (2)
  1. HUMIRA [Suspect]
     Indication: ANKYLOSING SPONDYLITIS
     Route: 058
     Dates: start: 20110915, end: 20130501
  2. VOLTAROL-DICLOFENAC: POTASSIUM- DIETHYLAMINE-FREE ACID- SODIUM [Concomitant]
     Indication: PAIN
     Route: 048
     Dates: start: 20120905

REACTIONS (5)
  - Muscular weakness [Recovering/Resolving]
  - Paraesthesia [Recovering/Resolving]
  - Paraesthesia [Recovering/Resolving]
  - Gait disturbance [Recovering/Resolving]
  - Demyelination [Unknown]
